FAERS Safety Report 7366761-7 (Version None)
Quarter: 2011Q1

REPORT INFORMATION
  Report Type: 
  Country: None (occurrence: None)
  Receive Date: 20110322
  Receipt Date: 20110316
  Transmission Date: 20110831
  Serious: Yes (Other)
  Sender: FDA-Public Use
  Company Number: US-PFIZER INC-2011058663

PATIENT
  Sex: Female
  Weight: 58.957 kg

DRUGS (8)
  1. TRAVOPROST [Suspect]
     Indication: GLAUCOMA
     Dosage: UNK
     Dates: start: 20080101, end: 20080101
  2. PROTONIX [Concomitant]
     Dosage: 40 MG, UNK
  3. VALIUM [Concomitant]
     Dosage: UNK
  4. LUMIGAN [Suspect]
     Indication: GLAUCOMA
     Dosage: UNK
     Dates: start: 20080101, end: 20080101
  5. NORCO [Concomitant]
     Dosage: 10/325 MG, UNK
  6. XALATAN [Suspect]
     Indication: GLAUCOMA
     Dosage: 1 DROP IN EACH EYE ONCE A DAY
     Route: 047
     Dates: start: 20021201, end: 20080101
  7. HYDROMORPHONE [Concomitant]
     Dosage: 1 MG, 1X/DAY
  8. PREMARIN [Concomitant]
     Dosage: UNK

REACTIONS (7)
  - VISUAL ACUITY REDUCED [None]
  - SKIN BURNING SENSATION [None]
  - HEADACHE [None]
  - EYE IRRITATION [None]
  - EYELID MARGIN CRUSTING [None]
  - PHOTOPHOBIA [None]
  - DRUG INEFFECTIVE [None]
